FAERS Safety Report 5530728-1 (Version None)
Quarter: 2007Q4

REPORT INFORMATION
  Report Type: 
  Country: None (occurrence: None)
  Receive Date: 20071130
  Receipt Date: 20061030
  Transmission Date: 20080405
  Serious: No
  Sender: FDA-Public Use
  Company Number: US-BRISTOL-MYERS SQUIBB COMPANY-13559570

PATIENT
  Age: 51 Year
  Sex: Female
  Weight: 59 kg

DRUGS (2)
  1. KENALOG [Suspect]
     Indication: RASH
  2. SECTRAL [Concomitant]

REACTIONS (2)
  - INJECTION SITE ATROPHY [None]
  - INJECTION SITE ERYTHEMA [None]
